FAERS Safety Report 10402483 (Version 1)
Quarter: 2014Q3

REPORT INFORMATION
  Report Type: Spontaneous
  Country: US (occurrence: US)
  Receive Date: 20140822
  Receipt Date: 20140822
  Transmission Date: 20150326
  Serious: Yes (Other)
  Sender: FDA-Public Use
  Company Number: US-PFIZER INC-2014229932

PATIENT
  Age: 48 Year
  Sex: Female

DRUGS (3)
  1. LYRICA [Suspect]
     Active Substance: PREGABALIN
     Dosage: 200 MG, DAILY
  2. LOTENSIN HCT [Concomitant]
     Active Substance: BENAZEPRIL HYDROCHLORIDE\HYDROCHLOROTHIAZIDE
     Dosage: 1 DF, 1X/DAY
  3. LYRICA [Suspect]
     Active Substance: PREGABALIN
     Dosage: 75 MG, 2X/DAY

REACTIONS (12)
  - Emotional disorder [Unknown]
  - Ulcer [Unknown]
  - Agitation [Unknown]
  - Stress [Unknown]
  - Vision blurred [Unknown]
  - Peripheral swelling [Unknown]
  - Anger [Unknown]
  - Dry mouth [Unknown]
  - Anxiety [Unknown]
  - Cataract [Unknown]
  - Aggression [Unknown]
  - Pain [Unknown]
